FAERS Safety Report 12073135 (Version 1)
Quarter: 2016Q1

REPORT INFORMATION
  Report Type: Spontaneous
  Country: DE (occurrence: DE)
  Receive Date: 20160212
  Receipt Date: 20160212
  Transmission Date: 20160526
  Serious: Yes (Hospitalization, Other)
  Sender: FDA-Public Use
  Company Number: DE-ROXANE LABORATORIES, INC.-2016-RO-00245RO

PATIENT
  Age: 42 Year
  Sex: Female
  Weight: 57 kg

DRUGS (1)
  1. FUROSEMIDE TABLETS USP, 20 MG [Suspect]
     Active Substance: FUROSEMIDE
     Indication: WEIGHT CONTROL
     Dosage: 180 MG
     Route: 065

REACTIONS (4)
  - Drug abuse [Unknown]
  - Rebound effect [Unknown]
  - Hypokalaemia [Recovered/Resolved]
  - Nephrocalcinosis [Unknown]
